FAERS Safety Report 4596829-X (Version None)
Quarter: 2005Q1

REPORT INFORMATION
  Report Type: 
  Country: None (occurrence: None)
  Receive Date: 20050228
  Receipt Date: 20050217
  Transmission Date: 20050727
  Serious: Yes (Other)
  Sender: FDA-Public Use
  Company Number: 2004-12-1318

PATIENT
  Sex: Female

DRUGS (1)
  1. DIPRODERM OTIC SOLUTION   ^LIKE DIPROLENE OINTMENT^ [Suspect]
     Indication: EAR INFECTION
     Dosage: 1 DOSE BID EYE
     Dates: start: 20041203, end: 20041211

REACTIONS (4)
  - CORNEAL OEDEMA [None]
  - EYE PAIN [None]
  - MEDICATION ERROR [None]
  - VISUAL ACUITY REDUCED [None]
